FAERS Safety Report 23905867 (Version 1)
Quarter: 2024Q2

REPORT INFORMATION
  Report Type: Spontaneous
  Country: US (occurrence: US)
  Receive Date: 20240527
  Receipt Date: 20240527
  Transmission Date: 20240716
  Serious: No
  Sender: FDA-Public Use
  Company Number: US-NEUROCRINE BIOSCIENCES INC.-2024NBI04903

PATIENT
  Age: 6 Decade
  Sex: Male

DRUGS (1)
  1. INGREZZA [Suspect]
     Active Substance: VALBENAZINE
     Indication: Tardive dyskinesia
     Dosage: 80 MILLIGRAM, UNKNOWN
     Route: 065

REACTIONS (4)
  - Eye movement disorder [Recovered/Resolved]
  - Gait disturbance [Recovered/Resolved]
  - Dystonia [Recovered/Resolved]
  - Parkinsonism [Recovered/Resolved]
